FAERS Safety Report 20727091 (Version 1)
Quarter: 2022Q2

REPORT INFORMATION
  Report Type: Report from Study
  Country: DE (occurrence: None)
  Receive Date: 20220419
  Receipt Date: 20220419
  Transmission Date: 20220721
  Serious: Yes (Hospitalization)
  Sender: FDA-Public Use
  Company Number: DE-ROCHE-3071680

PATIENT
  Age: 63 Year
  Sex: Female

DRUGS (3)
  1. CARBOPLATIN [Suspect]
     Active Substance: CARBOPLATIN
     Indication: Small cell lung cancer extensive stage
     Dosage: LAST ADMINISTERED PRIOR TO THE EVENT ON 25/JAN/2022
     Route: 042
     Dates: start: 20211214, end: 20220127
  2. ATEZOLIZUMAB [Suspect]
     Active Substance: ATEZOLIZUMAB
     Indication: Small cell lung cancer extensive stage
     Dosage: LAST ADMINISTERED PRIOR TO THE EVENT ON 25/JAN/2022
     Route: 042
     Dates: start: 20211214, end: 20220125
  3. ETOPOSIDE [Suspect]
     Active Substance: ETOPOSIDE
     Indication: Small cell lung cancer extensive stage
     Dosage: LAST ADMINISTERED PRIOR TO THE EVENT ON 27/JAN/2022 ON THREE CONSECUTIVE DAYS
     Route: 042
     Dates: start: 20171214, end: 20220127

REACTIONS (1)
  - Chronic obstructive pulmonary disease [Recovered/Resolved]

NARRATIVE: CASE EVENT DATE: 20220302
